FAERS Safety Report 16762034 (Version 1)
Quarter: 2019Q3

REPORT INFORMATION
  Report Type: Spontaneous
  Country: JP (occurrence: JP)
  Receive Date: 20190830
  Receipt Date: 20190830
  Transmission Date: 20191005
  Serious: Yes (Hospitalization, Other)
  Sender: FDA-Public Use
  Company Number: JP-SUNOVION-2019SUN003494

PATIENT
  Age: 26 Year
  Sex: Male

DRUGS (3)
  1. SELENICA-R [Suspect]
     Active Substance: VALPROATE SODIUM
     Indication: EPILEPSY
     Route: 048
  2. LUNESTA [Suspect]
     Active Substance: ESZOPICLONE
     Indication: INSOMNIA
     Dosage: 40 MG, QD
     Route: 048
  3. FYCOMPA [Suspect]
     Active Substance: PERAMPANEL
     Indication: EPILEPSY
     Dosage: 56 MG, QD
     Route: 048

REACTIONS (3)
  - Altered state of consciousness [Recovered/Resolved]
  - Aggression [Unknown]
  - Overdose [Unknown]

NARRATIVE: CASE EVENT DATE: 20190819
